FAERS Safety Report 9401102 (Version 1)
Quarter: 2013Q3

REPORT INFORMATION
  Report Type: Spontaneous
  Country: US (occurrence: US)
  Receive Date: 20130715
  Receipt Date: 20130715
  Transmission Date: 20140515
  Serious: No
  Sender: FDA-Public Use
  Company Number: US-009507513-1307USA005534

PATIENT
  Sex: 0

DRUGS (1)
  1. EMEND [Suspect]
     Route: 042

REACTIONS (1)
  - Phlebitis [Unknown]
